FAERS Safety Report 18924797 (Version 1)
Quarter: 2021Q1

REPORT INFORMATION
  Report Type: Spontaneous
  Country: US (occurrence: US)
  Receive Date: 20210223
  Receipt Date: 20210223
  Transmission Date: 20210420
  Serious: Yes (Hospitalization, Other)
  Sender: FDA-Public Use
  Company Number: US-GRANULES-US-2021GRALIT00146

PATIENT
  Age: 54 Year
  Sex: Male

DRUGS (2)
  1. ACETAMINOPHEN. [Suspect]
     Active Substance: ACETAMINOPHEN
     Indication: PAIN
  2. FLUCONAZOLE. [Interacting]
     Active Substance: FLUCONAZOLE
     Indication: PRODUCT USED FOR UNKNOWN INDICATION
     Route: 048

REACTIONS (5)
  - Intentional product misuse [Unknown]
  - Soft tissue necrosis [Unknown]
  - Pneumococcal infection [Unknown]
  - Sinusitis fungal [Unknown]
  - Staphylococcal infection [Unknown]
